FAERS Safety Report 8520965-6 (Version None)
Quarter: 2012Q3

REPORT INFORMATION
  Report Type: 
  Country: None (occurrence: None)
  Receive Date: 20120719
  Receipt Date: 20120710
  Transmission Date: 20120928
  Serious: Yes (Hospitalization)
  Sender: FDA-Public Use
  Company Number: US-ASTRAZENECA-2002UW16428

PATIENT
  Age: 62 Year
  Sex: Female
  Weight: 83.9 kg

DRUGS (32)
  1. SEROQUEL [Suspect]
     Indication: BIPOLAR DISORDER
     Route: 048
  2. SEROQUEL [Suspect]
     Route: 048
  3. SEROQUEL [Suspect]
     Route: 048
  4. SEROQUEL [Suspect]
     Route: 048
     Dates: start: 20050101
  5. SEROQUEL [Suspect]
     Route: 048
     Dates: start: 20050101
  6. SEROQUEL [Suspect]
     Indication: DEPRESSION
     Route: 048
  7. SEROQUEL [Suspect]
     Route: 048
     Dates: start: 20050101
  8. SEROQUEL [Suspect]
     Route: 048
  9. KLONOPIN [Concomitant]
     Indication: PANIC ATTACK
  10. VISTARIL [Concomitant]
  11. VANCOMYCIN [Concomitant]
     Indication: ANTIBIOTIC THERAPY
  12. NEXIUM [Suspect]
     Indication: GASTROOESOPHAGEAL REFLUX DISEASE
     Route: 048
  13. SEROQUEL [Suspect]
     Route: 048
  14. SEROQUEL [Suspect]
     Route: 048
     Dates: start: 20050101
  15. SEROQUEL [Suspect]
     Route: 048
     Dates: start: 20120501
  16. PHENERGAN HCL [Concomitant]
  17. SEROQUEL [Suspect]
     Route: 048
  18. SEROQUEL [Suspect]
     Route: 048
  19. SEROQUEL [Suspect]
     Route: 048
     Dates: start: 20120501
  20. SEROQUEL [Suspect]
     Route: 048
     Dates: start: 20120501
  21. ASACOL [Concomitant]
  22. CELEXA [Concomitant]
  23. LIPITOR [Concomitant]
  24. FIORICET W/ CODEINE [Concomitant]
     Indication: HEADACHE
  25. EFFEXOR [Concomitant]
     Indication: DEPRESSION
  26. PRILOSEC [Suspect]
     Route: 048
  27. SEROQUEL [Suspect]
     Indication: HALLUCINATION, AUDITORY
     Route: 048
  28. SEROQUEL [Suspect]
     Indication: SLEEP DISORDER
     Route: 048
  29. SEROQUEL [Suspect]
     Route: 048
  30. SEROQUEL [Suspect]
     Route: 048
  31. SEROQUEL [Suspect]
     Route: 048
     Dates: start: 20120501
  32. NAVANE [Concomitant]

REACTIONS (26)
  - PNEUMONIA [None]
  - FEELING JITTERY [None]
  - ABNORMAL BEHAVIOUR [None]
  - TREMOR [None]
  - CHRONIC OBSTRUCTIVE PULMONARY DISEASE [None]
  - CONDITION AGGRAVATED [None]
  - ADVERSE EVENT [None]
  - DRUG INEFFECTIVE [None]
  - INFLUENZA [None]
  - CLOSTRIDIAL INFECTION [None]
  - PSYCHOTIC BEHAVIOUR [None]
  - STAPHYLOCOCCAL INFECTION [None]
  - FEELING ABNORMAL [None]
  - BONE PAIN [None]
  - INSOMNIA RELATED TO ANOTHER MENTAL CONDITION [None]
  - HALLUCINATION, VISUAL [None]
  - HEADACHE [None]
  - DRUG DOSE OMISSION [None]
  - EMPHYSEMA [None]
  - OROPHARYNGEAL PAIN [None]
  - CRYING [None]
  - HALLUCINATION, AUDITORY [None]
  - MALAISE [None]
  - ABNORMAL SLEEP-RELATED EVENT [None]
  - THINKING ABNORMAL [None]
  - DYSPNOEA [None]
